FAERS Safety Report 23926816 (Version 2)
Quarter: 2025Q3

REPORT INFORMATION
  Report Type: Spontaneous
  Country: US (occurrence: US)
  Receive Date: 20240531
  Receipt Date: 20250703
  Transmission Date: 20251021
  Serious: No
  Sender: RADIUS PHARM
  Company Number: US-RADIUS HEALTH INC.-2024US000175

PATIENT
  Sex: Female

DRUGS (1)
  1. TYMLOS [Suspect]
     Active Substance: ABALOPARATIDE
     Indication: Senile osteoporosis
     Route: 058

REACTIONS (13)
  - Heart rate increased [Recovered/Resolved]
  - Product storage error [Unknown]
  - Dizziness [Unknown]
  - Feeling abnormal [Recovered/Resolved]
  - Chest discomfort [Unknown]
  - Muscle tightness [Unknown]
  - Headache [Unknown]
  - Fatigue [Unknown]
  - Stress [Unknown]
  - Disturbance in attention [Unknown]
  - Photophobia [Unknown]
  - Hyperacusis [Unknown]
  - Balance disorder [Unknown]
